FAERS Safety Report 5375110-5 (Version None)
Quarter: 2007Q2

REPORT INFORMATION
  Report Type: 
  Country: None (occurrence: None)
  Receive Date: 20070629
  Receipt Date: 20060907
  Transmission Date: 20071010
  Serious: No
  Sender: FDA-Public Use
  Company Number: US-ASTRAZENECA-2006UW17676

PATIENT
  Age: 88 Year
  Sex: Male
  Weight: 120.2 kg

DRUGS (10)
  1. ZOLADEX [Suspect]
     Indication: PROSTATE CANCER
     Dosage: ADMINISTERED AT 13 WEEK AND 14 WEEK INTERVALS (WHILE THE PI INDICATES EVERY 12 WEEKS ADMINISTRATION)
     Route: 058
     Dates: start: 19980601
  2. ATENOLOL [Concomitant]
  3. LISINOPRIL [Concomitant]
  4. LASIX [Concomitant]
  5. POTASSIUM ACETATE [Concomitant]
  6. VYTORIN [Concomitant]
  7. NITROGLYCERIN [Concomitant]
     Route: 062
  8. NITROGLYCERIN [Concomitant]
     Route: 048
  9. COUMADIN [Concomitant]
     Dosage: 7.5 MG 6 DAYS WEEKLY
  10. ASPIRIN [Concomitant]
     Dosage: 2 - 81 MG COATED ASA DAILY
     Route: 048

REACTIONS (1)
  - PROSTATIC SPECIFIC ANTIGEN INCREASED [None]
